FAERS Safety Report 4671048-7 (Version None)
Quarter: 2005Q2

REPORT INFORMATION
  Report Type: 
  Country: None (occurrence: None)
  Receive Date: 20050523
  Receipt Date: 20050510
  Transmission Date: 20051028
  Serious: Yes (Hospitalization, Disabling, Other)
  Sender: FDA-Public Use
  Company Number: 2005073509

PATIENT
  Age: 29 Year
  Sex: Female

DRUGS (2)
  1. SALAZOPYRINA (SULFASALAZINE) [Suspect]
     Indication: RHEUMATOID ARTHRITIS
     Dosage: ORAL
     Route: 048
     Dates: start: 20040303, end: 20040301
  2. CORTICOSTEROIDS [Concomitant]

REACTIONS (2)
  - PUNCTATE KERATITIS [None]
  - STEVENS-JOHNSON SYNDROME [None]
